FAERS Safety Report 8573329-3 (Version None)
Quarter: 2012Q3

REPORT INFORMATION
  Report Type: 
  Country: None (occurrence: None)
  Receive Date: 20120806
  Receipt Date: 20120727
  Transmission Date: 20120928
  Serious: Yes (Hospitalization)
  Sender: FDA-Public Use
  Company Number: US-ASTRAZENECA-2012SE53537

PATIENT
  Age: 57 Year

DRUGS (2)
  1. CRESTOR [Suspect]
     Route: 048
  2. TRILIPIX [Concomitant]

REACTIONS (1)
  - RHABDOMYOLYSIS [None]
